FAERS Safety Report 8494088-9 (Version None)
Quarter: 2012Q2

REPORT INFORMATION
  Report Type: 
  Country: None (occurrence: None)
  Receive Date: 20120629
  Receipt Date: 20120629
  Transmission Date: 20120825
  Serious: Yes (Other)
  Sender: FDA-Public Use
  Company Number: None

PATIENT
  Age: 53 Year
  Sex: Male
  Weight: 67.1324 kg

DRUGS (2)
  1. LANSOPRAZOLE [Suspect]
     Indication: ULCER
     Dosage: 15MG DAILY PO
     Route: 048
     Dates: start: 20120508, end: 20120620
  2. LANSOPRAZOLE [Suspect]
     Indication: THERMAL BURN
     Dosage: 15MG DAILY PO
     Route: 048
     Dates: start: 20120508, end: 20120620

REACTIONS (9)
  - PRODUCT SUBSTITUTION ISSUE [None]
  - HYPERAESTHESIA [None]
  - SKIN EXFOLIATION [None]
  - SKIN BURNING SENSATION [None]
  - DRY SKIN [None]
  - DYSGEUSIA [None]
  - PARAESTHESIA [None]
  - PRODUCT QUALITY ISSUE [None]
  - DIABETIC NEPHROPATHY [None]
